FAERS Safety Report 17099936 (Version 2)
Quarter: 2020Q1

REPORT INFORMATION
  Report Type: Spontaneous
  Country: JP (occurrence: JP)
  Receive Date: 20191202
  Receipt Date: 20200116
  Transmission Date: 20200409
  Serious: Yes (Hospitalization, Other)
  Sender: FDA-Public Use
  Company Number: JP-BAYER-2019-212926

PATIENT
  Age: 35 Year
  Sex: Female
  Weight: 50 kg

DRUGS (5)
  1. MIRENA [Suspect]
     Active Substance: LEVONORGESTREL
     Indication: ANAEMIA
  2. LEXOTAN [Concomitant]
     Active Substance: BROMAZEPAM
  3. ETIZOLAM [Concomitant]
     Active Substance: ETIZOLAM
  4. MIRENA [Suspect]
     Active Substance: LEVONORGESTREL
     Indication: MENORRHAGIA
     Dosage: 20 MCG/24HR, CONT
     Route: 015
     Dates: start: 20190626, end: 20191118
  5. WYPAX [Concomitant]
     Active Substance: LORAZEPAM

REACTIONS (7)
  - Complication of device removal [Recovered/Resolved]
  - Device dislocation [Unknown]
  - Post procedural haemorrhage [Recovered/Resolved]
  - Autoimmune thyroiditis [Unknown]
  - Metrorrhagia [Recovered/Resolved]
  - Haemoglobin decreased [Recovered/Resolved]
  - Abdominal pain lower [Unknown]

NARRATIVE: CASE EVENT DATE: 20190723
